FAERS Safety Report 15468818 (Version 1)
Quarter: 2018Q4

REPORT INFORMATION
  Report Type: Spontaneous
  Country: US (occurrence: US)
  Receive Date: 20181005
  Receipt Date: 20181005
  Transmission Date: 20190204
  Serious: No
  Sender: FDA-Public Use
  Company Number: US-VERTEX PHARMACEUTICALS-2018-007169

PATIENT
  Age: 44 Year
  Sex: Female

DRUGS (12)
  1. SYMDEKO [Suspect]
     Active Substance: IVACAFTOR\TEZACAFTOR
     Indication: CYSTIC FIBROSIS
     Dosage: 100MG TEZACAFTOR/150MG IVACAFTOR AM; 150MG IVACAFTOR PM
     Route: 048
     Dates: start: 20180627
  2. PERTZYE [Concomitant]
     Active Substance: PANCRELIPASE AMYLASE\PANCRELIPASE LIPASE\PANCRELIPASE PROTEASE
  3. ULORIC [Concomitant]
     Active Substance: FEBUXOSTAT
  4. PULMOZYME [Concomitant]
     Active Substance: DORNASE ALFA
  5. COLISTIMETHATE SODIUM. [Concomitant]
     Active Substance: COLISTIMETHATE SODIUM
  6. SODIUM CHLORIDE. [Concomitant]
     Active Substance: SODIUM CHLORIDE
  7. MONTELUKAST SODIUM. [Concomitant]
     Active Substance: MONTELUKAST SODIUM
  8. LEVALBUTEROL                       /01419301/ [Concomitant]
     Active Substance: LEVALBUTEROL
  9. CAYSTON [Concomitant]
     Active Substance: AZTREONAM
  10. FOSAMAX [Concomitant]
     Active Substance: ALENDRONATE SODIUM
  11. CREON [Concomitant]
     Active Substance: PANCRELIPASE AMYLASE\PANCRELIPASE LIPASE\PANCRELIPASE PROTEASE
  12. IRON [Concomitant]
     Active Substance: IRON

REACTIONS (1)
  - Constipation [Not Recovered/Not Resolved]

NARRATIVE: CASE EVENT DATE: 201808
